FAERS Safety Report 8206943-5 (Version None)
Quarter: 2012Q1

REPORT INFORMATION
  Report Type: 
  Country: None (occurrence: None)
  Receive Date: 20120312
  Receipt Date: 20120228
  Transmission Date: 20120608
  Serious: Yes (Hospitalization)
  Sender: FDA-Public Use
  Company Number: FRA-CLT-2012014

PATIENT
  Age: 3 Year
  Sex: Male

DRUGS (9)
  1. COUMADIN [Concomitant]
  2. KEPPRA (LEVEETIRACETAM) [Concomitant]
  3. CYSTADANE [Suspect]
     Indication: HOMOCYSTINURIA
     Dosage: 500 MG EVERY DAY; 4 G EVERY DAY, ORAL
     Route: 048
     Dates: start: 20110826
  4. KARDEGIC (LYSINE ACETYLSALICYLATE) [Concomitant]
  5. BECILAN (PYRIDOXINE) [Concomitant]
  6. DODECAVIT (VITAMIN B12) [Concomitant]
  7. LOVENIX  (ENOXAPARIN SODIUM) [Concomitant]
  8. SPECIAFOLDINE (FOLIC ACID) [Concomitant]
  9. CYSTINE B6 (CYSTINE / VITAMIN B6) [Concomitant]

REACTIONS (9)
  - DECREASED APPETITE [None]
  - EAR INFECTION [None]
  - ECCHYMOSIS [None]
  - NASOPHARYNGITIS [None]
  - PYREXIA [None]
  - ASTHENIA [None]
  - INFLUENZA [None]
  - TONSILLITIS [None]
  - VOMITING [None]
